FAERS Safety Report 5780589-0 (Version None)
Quarter: 2008Q2

REPORT INFORMATION
  Report Type: 
  Country: None (occurrence: None)
  Receive Date: 20080620
  Receipt Date: 20080610
  Transmission Date: 20081010
  Serious: Yes (Other)
  Sender: FDA-Public Use
  Company Number: US-ELI_LILLY_AND_COMPANY-US200806002132

PATIENT
  Age: 80 Year
  Sex: Male

DRUGS (6)
  1. HUMALOG [Suspect]
  2. HUMALOG [Suspect]
  3. HUMALOG [Suspect]
  4. ILETIN BEEF/PORK REGULAR [Suspect]
  5. ILETIN I [Suspect]
  6. LANTUS [Concomitant]

REACTIONS (11)
  - CARDIAC FAILURE CONGESTIVE [None]
  - DEVICE LEAKAGE [None]
  - DIABETIC RETINOPATHY [None]
  - INJECTION SITE BRUISING [None]
  - MUSCULAR WEAKNESS [None]
  - NEUROPATHY PERIPHERAL [None]
  - SPINAL COLUMN STENOSIS [None]
  - THYROID DISORDER [None]
  - TREMOR [None]
  - VASCULAR GRAFT [None]
  - VISUAL ACUITY REDUCED [None]
